FAERS Safety Report 7575625-5 (Version None)
Quarter: 2011Q2

REPORT INFORMATION
  Report Type: 
  Country: None (occurrence: None)
  Receive Date: 20110628
  Receipt Date: 20110614
  Transmission Date: 20111010
  Serious: Yes (Death)
  Sender: FDA-Public Use
  Company Number: IN-MYLANLABS-2011S1012639

PATIENT
  Age: 14 Year
  Sex: Male

DRUGS (2)
  1. CISPLATIN [Concomitant]
     Indication: NASOPHARYNGEAL CANCER
     Dosage: 50MG/M2 ON DAYS 1 AND 2 OF A 3-WEEKLY CYCLE
     Route: 065
  2. FLUOROURACIL [Suspect]
     Indication: NASOPHARYNGEAL CANCER
     Dosage: 750MG/M2 INFUSED OVER 6 HOURS ON DAYS 2 TO 5 OF A 3-WEEKLY CYCLE
     Route: 065

REACTIONS (10)
  - CONGESTIVE CARDIOMYOPATHY [None]
  - ARRHYTHMIA [None]
  - TACHYPNOEA [None]
  - SINUS TACHYCARDIA [None]
  - DIZZINESS [None]
  - PULMONARY OEDEMA [None]
  - CARDIOMEGALY [None]
  - HYPOTENSION [None]
  - RALES [None]
  - FALL [None]
